FAERS Safety Report 4963317-8 (Version None)
Quarter: 2006Q2

REPORT INFORMATION
  Report Type: 
  Country: None (occurrence: None)
  Receive Date: 20060404
  Receipt Date: 20060404
  Transmission Date: 20061013
  Serious: Yes (Hospitalization)
  Sender: FDA-Public Use
  Company Number: None

PATIENT
  Age: 96 Year
  Sex: Male
  Weight: 73.5 kg

DRUGS (5)
  1. WARFARIN SODIUM [Suspect]
     Dosage: 5MG, Q HS, BY MOUTH
     Route: 048
     Dates: start: 20051209, end: 20051224
  2. METOPROLOL TARTRATE [Concomitant]
  3. ADALAT CC [Concomitant]
  4. TRAVAOPROST (TRAVATAN) [Concomitant]
  5. ZITHROMAX [Concomitant]

REACTIONS (1)
  - HAEMOPTYSIS [None]
